FAERS Safety Report 7956721-7 (Version None)
Quarter: 2011Q4

REPORT INFORMATION
  Report Type: 
  Country: None (occurrence: None)
  Receive Date: 20111205
  Receipt Date: 20111124
  Transmission Date: 20120403
  Serious: Yes (Hospitalization)
  Sender: FDA-Public Use
  Company Number: JP-EISAI INC-E7389-01770-CLI-JP

PATIENT
  Sex: Female
  Weight: 42 kg

DRUGS (11)
  1. MAGMITT [Concomitant]
     Indication: PROPHYLAXIS
     Route: 048
  2. HALAVEN [Suspect]
     Indication: METASTASES TO LIVER
     Route: 041
     Dates: start: 20110901, end: 20110916
  3. JUZEN-TAIHO-TO [Concomitant]
     Route: 048
  4. URSO 250 [Concomitant]
     Route: 048
  5. NEU-UP [Concomitant]
     Indication: PROPHYLAXIS
     Route: 058
  6. HALAVEN [Suspect]
     Route: 041
     Dates: start: 20110928
  7. HALAVEN [Suspect]
     Indication: BREAST CANCER RECURRENT
     Route: 041
     Dates: start: 20110819, end: 20110819
  8. PRIMPERAN TAB [Concomitant]
     Indication: PROPHYLAXIS
     Route: 048
  9. LEVOTHYROXINE SODIUM [Concomitant]
     Route: 048
  10. MUCOSTA [Concomitant]
     Indication: PROPHYLAXIS
     Route: 048
  11. RHYTHMY [Concomitant]
     Route: 048

REACTIONS (4)
  - NEUTROPENIA [None]
  - LYMPHOPENIA [None]
  - LEUKOPENIA [None]
  - FEBRILE NEUTROPENIA [None]
